FAERS Safety Report 10910154 (Version 1)
Quarter: 2015Q1

REPORT INFORMATION
  Report Type: Spontaneous
  Country: US (occurrence: US)
  Receive Date: 20150312
  Receipt Date: 20150312
  Transmission Date: 20150721
  Serious: No
  Sender: FDA-Public Use
  Company Number: US-SA-2014SA113291

PATIENT
  Age: 64 Year
  Sex: Male

DRUGS (1)
  1. NASACORT ALLERGY 24HR [Suspect]
     Active Substance: TRIAMCINOLONE ACETONIDE
     Indication: MULTIPLE ALLERGIES
     Dosage: FREQUENCY- 2 SPRAYS IN EACH NOSTRIL DAILY
     Route: 045

REACTIONS (4)
  - Limb discomfort [Unknown]
  - Drug ineffective [Unknown]
  - Cough [Unknown]
  - Hypoaesthesia [Unknown]
